FAERS Safety Report 5907612-4 (Version None)
Quarter: 2008Q4

REPORT INFORMATION
  Report Type: 
  Country: None (occurrence: None)
  Receive Date: 20081002
  Receipt Date: 20081002
  Transmission Date: 20090506
  Serious: Yes (Other)
  Sender: FDA-Public Use
  Company Number: None

PATIENT
  Age: 70 Year
  Sex: Female
  Weight: 98.4306 kg

DRUGS (1)
  1. FENTANYL [Suspect]
     Indication: PAIN
     Dosage: PATCH Q3D TRANSDERMAL
     Route: 062
     Dates: start: 20080301, end: 20080930

REACTIONS (2)
  - INADEQUATE ANALGESIA [None]
  - SEDATION [None]
